FAERS Safety Report 19988270 (Version 2)
Quarter: 2021Q4

REPORT INFORMATION
  Report Type: Spontaneous
  Country: AR (occurrence: AR)
  Receive Date: 20211022
  Receipt Date: 20211210
  Transmission Date: 20220303
  Serious: Yes (Death)
  Sender: FDA-Public Use
  Company Number: AR-ALXN-A202111614

PATIENT
  Age: 44 Year
  Sex: Female

DRUGS (1)
  1. SOLIRIS [Suspect]
     Active Substance: ECULIZUMAB
     Indication: Paroxysmal nocturnal haemoglobinuria
     Dosage: 900 MG, Q2W
     Route: 042
     Dates: start: 2015

REACTIONS (1)
  - Suspected COVID-19 [Fatal]

NARRATIVE: CASE EVENT DATE: 20210901
